FAERS Safety Report 8583071 (Version 2)
Quarter: 2013Q2

REPORT INFORMATION
  Report Type: Spontaneous
  Country: JP (occurrence: None)
  Receive Date: 20120430
  Receipt Date: 20130515
  Transmission Date: 20140414
  Serious: Yes (Hospitalization)
  Sender: FDA-Public Use
  Company Number: 2012032035

PATIENT
  Age: 13 Year
  Sex: Female

DRUGS (4)
  1. HUMAN IMMUNOGLOBULIN G [Suspect]
     Indication: PRIMARY IMMUNODEFICIENCY SYNDROME
     Dosage: 16 ML 1X/WEEK /SUBCUTANEOUS
     Route: 058
     Dates: start: 20100228
  2. MUCODYNE (CARBOCISTEINE) [Concomitant]
  3. LYSOZYME HYDROCHLORIDE [Concomitant]
  4. LIVOSTIN [Concomitant]

REACTIONS (1)
  - MENINGITIS ASEPTIC [None]
